FAERS Safety Report 4864528-2 (Version None)
Quarter: 2005Q4

REPORT INFORMATION
  Report Type: 
  Country: None (occurrence: None)
  Receive Date: 20051222
  Receipt Date: 20000508
  Transmission Date: 20060501
  Serious: Yes (Death, Hospitalization)
  Sender: FDA-Public Use
  Company Number: US-ROCHE-236003

PATIENT
  Age: 66 Year
  Sex: Male
  Weight: 78.1 kg

DRUGS (45)
  1. DACLIZUMAB [Suspect]
     Route: 042
     Dates: start: 19991119, end: 20000107
  2. CELLCEPT [Suspect]
     Route: 065
     Dates: start: 20000426, end: 20001006
  3. NEORAL [Suspect]
     Route: 065
     Dates: start: 19991128
  4. NEORAL [Suspect]
     Route: 065
     Dates: start: 20000429
  5. PREDNISONE TAB [Suspect]
     Route: 065
     Dates: start: 20000319
  6. BACTRIM [Concomitant]
     Route: 048
     Dates: start: 19991115
  7. EPOGEN [Concomitant]
     Dates: start: 20000502
  8. FERROUS GLUCONATE [Concomitant]
     Dates: start: 20000320
  9. CARDIZEM CD [Concomitant]
     Dates: start: 19991115
  10. CLONIDINE [Concomitant]
     Dates: start: 20000321
  11. HYTON [Concomitant]
     Dates: start: 20000429
  12. OS-CAL D [Concomitant]
     Dates: start: 20000120
  13. PRAVACHOL [Concomitant]
     Dates: start: 20000301
  14. AMBIEN [Concomitant]
     Dates: start: 19991115
  15. MAG OXIDE [Concomitant]
     Dates: start: 19991115
  16. COLACE [Concomitant]
     Route: 048
     Dates: start: 19991115
  17. CARAFATE [Concomitant]
     Dates: start: 19991115
  18. INSULIN [Concomitant]
     Dosage: SLIDING SCALE
  19. INSULIN-70/30 HUMULIN [Concomitant]
  20. MYCELEX [Concomitant]
     Dates: start: 19991115
  21. MULTI-VITAMIN [Concomitant]
     Dates: start: 19991128
  22. FLOMAX [Concomitant]
     Dates: start: 19991115
  23. CALCIUM GLUCONATE [Concomitant]
  24. MAGNESIUM [Concomitant]
  25. NYSTATIN [Concomitant]
     Dosage: AFER EACH MEAL.
     Dates: start: 19991119
  26. HYDRALAZINE [Concomitant]
     Dates: start: 20000429, end: 20000504
  27. TERAZOSIN [Concomitant]
     Dates: start: 20000427
  28. BUMETANIDE [Concomitant]
     Dates: start: 19991119
  29. ALUMINUM HYDROXIDE GEL [Concomitant]
     Dates: start: 19991128, end: 19991128
  30. SODIUM DOCUSATE [Concomitant]
     Dates: start: 19991127
  31. SUCRALFATE [Concomitant]
     Dates: start: 19991122
  32. METHYLPREDNISOLONE [Concomitant]
     Dates: start: 19991119
  33. REGULAR INSULIN [Concomitant]
     Dates: start: 19991119
  34. DIPHENHYDRAMINE HCL [Concomitant]
     Dates: start: 19991120
  35. FERROUS SULFATE TAB [Concomitant]
     Dates: start: 19991126
  36. AMIODARONE [Concomitant]
     Dates: start: 19991120
  37. POTASSIUM CHLORIDE [Concomitant]
     Dates: start: 19991119
  38. METOLAZONE [Concomitant]
     Dates: start: 19991128
  39. ATGAM [Concomitant]
     Dates: start: 19991120
  40. CLOTRIMAZOLE LOZENGE [Concomitant]
     Dates: start: 19991120
  41. DOPAMINE [Concomitant]
     Dates: start: 19991119
  42. MILRINONE [Concomitant]
     Dates: start: 19991119
  43. MORPHINE SULFATE [Concomitant]
     Dates: start: 19991119
  44. ACETAMINOPHEN [Concomitant]
     Dates: start: 19991121
  45. GLIPIZIDE [Concomitant]
     Dates: start: 19991128

REACTIONS (17)
  - AGGRESSION [None]
  - AGITATION [None]
  - BACTERAEMIA [None]
  - CARDIAC PSEUDOANEURYSM [None]
  - CELLULITIS [None]
  - INJECTION SITE CELLULITIS [None]
  - LOCALISED INFECTION [None]
  - LOSS OF CONSCIOUSNESS [None]
  - MEDIASTINITIS [None]
  - MENTAL STATUS CHANGES [None]
  - MYOCARDIAL INFARCTION [None]
  - ORTHOSTATIC HYPOTENSION [None]
  - OSTEOMYELITIS [None]
  - POSTOPERATIVE WOUND INFECTION [None]
  - PSEUDOMONAS INFECTION [None]
  - PULSE ABSENT [None]
  - WOUND INFECTION [None]
